FAERS Safety Report 7599797-1 (Version None)
Quarter: 2011Q3

REPORT INFORMATION
  Report Type: 
  Country: None (occurrence: None)
  Receive Date: 20110711
  Receipt Date: 20110706
  Transmission Date: 20111222
  Serious: Yes (Other)
  Sender: FDA-Public Use
  Company Number: DE-AMGEN-DEUSP2011034128

PATIENT
  Sex: Female

DRUGS (4)
  1. PACLITAXEL [Concomitant]
  2. NEULASTA [Suspect]
     Indication: CHEMOTHERAPY
     Dosage: UNK
     Dates: start: 20110623
  3. EPIRUBICIN [Concomitant]
     Dosage: UNK
     Dates: start: 20110622
  4. CYCLOPHOSPHAMIDE [Concomitant]

REACTIONS (2)
  - DRUG INEFFECTIVE [None]
  - LEUKOCYTOSIS [None]
